FAERS Safety Report 17018132 (Version 2)
Quarter: 2020Q1

REPORT INFORMATION
  Report Type: Report from Study
  Country: US (occurrence: US)
  Receive Date: 20191111
  Receipt Date: 20200224
  Transmission Date: 20200409
  Serious: No
  Sender: FDA-Public Use
  Company Number: NVSC2019US003466

PATIENT
  Age: 35 Year
  Sex: Female

DRUGS (1)
  1. GILENYA [Suspect]
     Active Substance: FINGOLIMOD HYDROCHLORIDE
     Indication: MULTIPLE SCLEROSIS
     Dosage: 0.5 MG, QD
     Route: 048
     Dates: start: 20191002

REACTIONS (8)
  - Dizziness [Recovered/Resolved]
  - Rhinorrhoea [Recovering/Resolving]
  - Malaise [Recovering/Resolving]
  - Immune system disorder [Recovering/Resolving]
  - White blood cell count abnormal [Recovering/Resolving]
  - Conjunctivitis [Recovering/Resolving]
  - Nasopharyngitis [Recovering/Resolving]
  - Sinusitis [Recovering/Resolving]

NARRATIVE: CASE EVENT DATE: 20191002
